FAERS Safety Report 11538524 (Version 1)
Quarter: 2015Q3

REPORT INFORMATION
  Report Type: Report from Study
  Country: US (occurrence: None)
  Receive Date: 20150921
  Receipt Date: 20150921
  Transmission Date: 20151125
  Serious: Yes (Hospitalization)
  Sender: FDA-Public Use
  Company Number: 2015US0524

PATIENT
  Age: 21 Year
  Sex: Male
  Weight: 52.16 kg

DRUGS (1)
  1. ORFADIN [Suspect]
     Active Substance: NITISINONE
     Indication: TYROSINAEMIA
     Route: 048
     Dates: start: 20140513

REACTIONS (2)
  - Hiatus hernia [None]
  - Deposit eye [None]

NARRATIVE: CASE EVENT DATE: 201412
